FAERS Safety Report 18280806 (Version 1)
Quarter: 2020Q3

REPORT INFORMATION
  Report Type: Report from Study
  Country: GB (occurrence: GB)
  Receive Date: 20200918
  Receipt Date: 20200918
  Transmission Date: 20201103
  Serious: Yes (Hospitalization)
  Sender: FDA-Public Use
  Company Number: GB-BAUSCH-BL-2020-026586

PATIENT
  Age: 69 Year
  Sex: Male

DRUGS (2)
  1. KYNTHEUM [Suspect]
     Active Substance: BRODALUMAB
     Dosage: 210MG WEEK 0, 1, 2 THEN EVERY TWO WEEKS (1 IN 2 WEEK)
     Route: 058
  2. KYNTHEUM [Suspect]
     Active Substance: BRODALUMAB
     Indication: PSORIASIS
     Dosage: 210MG WEEK 0, 1, 2 THEN EVERY TWO WEEKS (1 IN 1 WEEK)
     Route: 058
     Dates: start: 201907

REACTIONS (1)
  - Hypotension [Unknown]
